FAERS Safety Report 5355136-8 (Version None)
Quarter: 2007Q2

REPORT INFORMATION
  Report Type: 
  Country: None (occurrence: None)
  Receive Date: 20070613
  Receipt Date: 20070607
  Transmission Date: 20071010
  Serious: Yes (Hospitalization)
  Sender: FDA-Public Use
  Company Number: JP-BRACCO-BRO-011764

PATIENT
  Age: 78 Year
  Sex: Male

DRUGS (4)
  1. IOPAMIRON [Suspect]
     Route: 050
     Dates: start: 20070529, end: 20070529
  2. IOPAMIRON [Suspect]
     Indication: ARTERIOGRAM CORONARY
     Route: 050
     Dates: start: 20070529, end: 20070529
  3. WARFARIN SODIUM [Concomitant]
     Route: 050
  4. KAYTWO [Concomitant]
     Route: 050

REACTIONS (2)
  - HEPATITIS FULMINANT [None]
  - RENAL FAILURE ACUTE [None]
